FAERS Safety Report 12377493 (Version 1)
Quarter: 2016Q2

REPORT INFORMATION
  Report Type: Spontaneous
  Country: US (occurrence: US)
  Receive Date: 20160517
  Receipt Date: 20160517
  Transmission Date: 20160815
  Serious: No
  Sender: FDA-Public Use
  Company Number: US-JNJFOC-20160409114

PATIENT
  Age: 12 Year
  Sex: Female
  Weight: 43.09 kg

DRUGS (2)
  1. CHILDRENS MOTRIN [Suspect]
     Active Substance: IBUPROFEN
     Route: 048
  2. CHILDRENS MOTRIN [Suspect]
     Active Substance: IBUPROFEN
     Indication: ORAL PAIN
     Dosage: 3 TEASPOONS AS NEEDED
     Route: 048
     Dates: start: 20160407, end: 20160408

REACTIONS (3)
  - Off label use [Unknown]
  - Drug prescribing error [Unknown]
  - Product contamination physical [Unknown]
